FAERS Safety Report 8611843-2 (Version None)
Quarter: 2012Q3

REPORT INFORMATION
  Report Type: 
  Country: None (occurrence: None)
  Receive Date: 20120822
  Receipt Date: 20120813
  Transmission Date: 20120928
  Serious: Yes (Other)
  Sender: FDA-Public Use
  Company Number: US-BAYER-2012-000092

PATIENT
  Sex: Female

DRUGS (1)
  1. YASMIN [Suspect]
     Dosage: UNK
     Route: 048
     Dates: start: 20060901, end: 20070101

REACTIONS (4)
  - INJURY [None]
  - THROMBOSIS [None]
  - PAIN [None]
  - PELVIC VENOUS THROMBOSIS [None]
